FAERS Safety Report 18980496 (Version 1)
Quarter: 2021Q1

REPORT INFORMATION
  Report Type: Report from Study
  Country: IE (occurrence: IE)
  Receive Date: 20210308
  Receipt Date: 20210308
  Transmission Date: 20210420
  Serious: Yes (Other)
  Sender: FDA-Public Use
  Company Number: IE-IPSEN BIOPHARMACEUTICALS, INC.-2021-05619

PATIENT
  Age: 64 Year
  Sex: Female

DRUGS (9)
  1. METFORMIN [Concomitant]
     Active Substance: METFORMIN HYDROCHLORIDE
     Route: 050
  2. BISOPROLOL [Concomitant]
     Active Substance: BISOPROLOL
     Route: 050
  3. ESOMEPRAZOLE. [Concomitant]
     Active Substance: ESOMEPRAZOLE MAGNESIUM
     Route: 050
  4. ATORVASTATIN [Concomitant]
     Active Substance: ATORVASTATIN
     Route: 050
  5. ASPIRIN. [Concomitant]
     Active Substance: ASPIRIN
     Route: 050
  6. LERCANIDIPINE [Concomitant]
     Active Substance: LERCANIDIPINE
     Route: 050
  7. SOMATULINE AUTOGEL [Suspect]
     Active Substance: LANREOTIDE ACETATE
     Indication: NEUROENDOCRINE TUMOUR
     Route: 058
     Dates: start: 20200428
  8. THYROXINE [Concomitant]
     Active Substance: LEVOTHYROXINE
     Dosage: 100 MICROGRAM ON ALTERNATE DAYS
     Route: 050
  9. RAMIPRIL. [Concomitant]
     Active Substance: RAMIPRIL
     Route: 050

REACTIONS (6)
  - Rash [Not Recovered/Not Resolved]
  - Injection site nodule [Not Recovered/Not Resolved]
  - Epilepsy [Not Recovered/Not Resolved]
  - Product dose omission issue [Unknown]
  - Pruritus [Not Recovered/Not Resolved]
  - Chest pain [Recovered/Resolved]

NARRATIVE: CASE EVENT DATE: 2021
